FAERS Safety Report 24801647 (Version 4)
Quarter: 2025Q1

REPORT INFORMATION
  Report Type: Spontaneous
  Country: US (occurrence: US)
  Receive Date: 20250102
  Receipt Date: 20250212
  Transmission Date: 20250408
  Serious: No
  Sender: PFIZER
  Company Number: US-PFIZER INC-202400305771

PATIENT
  Age: 12 Year
  Sex: Male

DRUGS (3)
  1. GENOTROPIN [Suspect]
     Active Substance: SOMATROPIN
     Indication: Growth hormone deficiency
     Dosage: 1 MG, 1X/DAY, ONCE A DAY EVERY NIGHT
     Dates: start: 202403
  2. LEVOTHYROXINE [Concomitant]
     Active Substance: LEVOTHYROXINE
     Indication: Hypothyroidism
  3. ANASTROZOLE [Concomitant]
     Active Substance: ANASTROZOLE
     Indication: Growth hormone deficiency
     Dosage: 1 MG, 1X/DAY

REACTIONS (2)
  - Device mechanical issue [Unknown]
  - Device use issue [Unknown]
